FAERS Safety Report 7460240-4 (Version None)
Quarter: 2011Q2

REPORT INFORMATION
  Report Type: 
  Country: None (occurrence: None)
  Receive Date: 20110505
  Receipt Date: 20110428
  Transmission Date: 20111010
  Serious: Yes (Other)
  Sender: FDA-Public Use
  Company Number: FI-ROCHE-774136

PATIENT

DRUGS (1)
  1. AVASTIN [Suspect]
     Dosage: DOSAGE, FREQUENCY UNKNOWN
     Route: 065

REACTIONS (1)
  - RENAL INFARCT [None]
